FAERS Safety Report 13824841 (Version 1)
Quarter: 2017Q3

REPORT INFORMATION
  Report Type: Spontaneous
  Country: GB (occurrence: GB)
  Receive Date: 20170802
  Receipt Date: 20170802
  Transmission Date: 20171127
  Serious: Yes (Disabling, Other)
  Sender: FDA-Public Use
  Company Number: GB-009507513-1707GBR011549

PATIENT
  Sex: Female

DRUGS (5)
  1. RIFINAH [Suspect]
     Active Substance: ISONIAZID\RIFAMPIN
     Dosage: UNK, STRENGTH: 300/150 (UNITS NOT PROVIDED)
     Dates: start: 2017, end: 2017
  2. PREDNISOLONE. [Suspect]
     Active Substance: PREDNISOLONE
     Dosage: UNK
     Route: 048
     Dates: start: 2017, end: 2017
  3. LEVOFLOXACIN. [Suspect]
     Active Substance: LEVOFLOXACIN
     Indication: DISSEMINATED BACILLUS CALMETTE-GUERIN INFECTION
     Dosage: 500 MG, BID
     Route: 048
     Dates: start: 20170329, end: 20170626
  4. ONCOTICE [Suspect]
     Active Substance: BACILLUS CALMETTE-GUERIN SUBSTRAIN TICE LIVE ANTIGEN
     Indication: BLADDER TRANSITIONAL CELL CARCINOMA STAGE I
     Dosage: 12.5 MG, UNK
     Route: 043
     Dates: start: 20170126, end: 20170216
  5. ETHAMBUTOL [Suspect]
     Active Substance: ETHAMBUTOL HYDROCHLORIDE
     Dosage: 1.2 G, QD
     Dates: start: 2017

REACTIONS (8)
  - Pain in extremity [Recovering/Resolving]
  - Disseminated Bacillus Calmette-Guerin infection [Unknown]
  - Liver function test abnormal [Unknown]
  - Malaise [Unknown]
  - Bladder disorder [Unknown]
  - Pyrexia [Unknown]
  - Gait disturbance [Recovering/Resolving]
  - Joint lock [Recovering/Resolving]

NARRATIVE: CASE EVENT DATE: 2017
